FAERS Safety Report 5815869-3 (Version None)
Quarter: 2008Q3

REPORT INFORMATION
  Report Type: 
  Country: None (occurrence: None)
  Receive Date: 20080721
  Receipt Date: 20080708
  Transmission Date: 20090109
  Serious: Yes (Life-Threatening, Hospitalization, Disabling, Other)
  Sender: FDA-Public Use
  Company Number: US-JNJFOC-20080704102

PATIENT
  Sex: Female

DRUGS (1)
  1. REMICADE [Suspect]
     Indication: ARTERITIS
     Route: 042

REACTIONS (14)
  - CSF GLUCOSE DECREASED [None]
  - CSF PROTEIN INCREASED [None]
  - DELIRIUM [None]
  - DEMENTIA [None]
  - DRUG ABUSE [None]
  - DRUG INEFFECTIVE [None]
  - DRUG TOXICITY [None]
  - ENCEPHALOPATHY [None]
  - GUILLAIN-BARRE SYNDROME [None]
  - LUMBAR PUNCTURE ABNORMAL [None]
  - LYMPHADENOPATHY [None]
  - MENINGITIS TUBERCULOUS [None]
  - NUCLEAR MAGNETIC RESONANCE IMAGING ABNORMAL [None]
  - PYREXIA [None]
